FAERS Safety Report 13855832 (Version 1)
Quarter: 2017Q3

REPORT INFORMATION
  Report Type: Spontaneous
  Country: US (occurrence: US)
  Receive Date: 20170810
  Receipt Date: 20170810
  Transmission Date: 20171127
  Serious: No
  Sender: FDA-Public Use
  Company Number: US-VIFOR (INTERNATIONAL) INC.-VIT-2017-00887

PATIENT
  Age: 31 Year
  Sex: Male
  Weight: 77.18 kg

DRUGS (4)
  1. LISINOPRIL. [Concomitant]
     Active Substance: LISINOPRIL
  2. VELTASSA [Suspect]
     Active Substance: PATIROMER
     Indication: BLOOD POTASSIUM
     Route: 048
     Dates: start: 20160822
  3. NIFEDIPINE. [Concomitant]
     Active Substance: NIFEDIPINE
  4. VELTASSA [Suspect]
     Active Substance: PATIROMER
     Dosage: 2 PACKS A DAY
     Route: 065

REACTIONS (1)
  - Blood potassium increased [Recovered/Resolved]

NARRATIVE: CASE EVENT DATE: 201701
